FAERS Safety Report 6458636-2 (Version None)
Quarter: 2009Q4

REPORT INFORMATION
  Report Type: 
  Country: None (occurrence: None)
  Receive Date: 20091127
  Receipt Date: 20091113
  Transmission Date: 20100525
  Serious: Yes (Hospitalization, Other)
  Sender: FDA-Public Use
  Company Number: FI-ELI_LILLY_AND_COMPANY-FI200911003481

PATIENT
  Age: 35 Year
  Sex: Female

DRUGS (3)
  1. CYMBALTA [Suspect]
     Indication: NEURALGIA
     Dosage: 30 MG, DAILY (1/D)
     Route: 048
     Dates: start: 20091026, end: 20091026
  2. BURANA [Concomitant]
     Indication: PAIN
     Dosage: 1-2 TABLETS, 1-2 TIMES DAILY
     Route: 048
  3. IMOVANE [Concomitant]
     Indication: INSOMNIA
     Dosage: 7.5 MG WITH HALF DOSE AT NIGHT, AS NEEDED
     Route: 048
     Dates: start: 20090101

REACTIONS (11)
  - ANXIETY [None]
  - ELECTROCARDIOGRAM ST SEGMENT DEPRESSION [None]
  - FEELING ABNORMAL [None]
  - HEART RATE INCREASED [None]
  - HOT FLUSH [None]
  - MALAISE [None]
  - OFF LABEL USE [None]
  - PARAESTHESIA [None]
  - THINKING ABNORMAL [None]
  - VOMITING [None]
  - WEIGHT DECREASED [None]
